FAERS Safety Report 7650502-X (Version None)
Quarter: 2011Q3

REPORT INFORMATION
  Report Type: 
  Country: None (occurrence: None)
  Receive Date: 20110802
  Receipt Date: 20110726
  Transmission Date: 20111222
  Serious: Yes (Hospitalization)
  Sender: FDA-Public Use
  Company Number: US-GLAXOSMITHKLINE-A0938375A

PATIENT
  Age: 66 Year
  Sex: Male

DRUGS (8)
  1. FLECAINIDE ACETATE [Concomitant]
  2. ADVAIR DISKUS 100/50 [Suspect]
     Indication: ASTHMA
     Dosage: 1PUFF TWICE PER DAY
     Route: 055
  3. PRILOSEC [Concomitant]
     Route: 048
  4. LISINOPRIL [Concomitant]
  5. PROAIR HFA [Concomitant]
  6. UNSPECIFIED MEDICATION [Concomitant]
  7. SIMVASTATIN [Concomitant]
  8. METOPROLOL TARTRATE [Concomitant]

REACTIONS (3)
  - CARDIAC ARREST [None]
  - ATRIAL FIBRILLATION [None]
  - BLOOD PRESSURE SYSTOLIC INCREASED [None]
